FAERS Safety Report 11889713 (Version 1)
Quarter: 2016Q1

REPORT INFORMATION
  Report Type: Spontaneous
  Country: IT (occurrence: IT)
  Receive Date: 20160105
  Receipt Date: 20160105
  Transmission Date: 20160526
  Serious: Yes (Death, Other)
  Sender: FDA-Public Use
  Company Number: IT-IPCA LABORATORIES LIMITED-IPC201512-000927

PATIENT
  Age: 56 Year
  Sex: Female

DRUGS (1)
  1. ALLOPURINOL. [Suspect]
     Active Substance: ALLOPURINOL
     Indication: BLOOD URIC ACID INCREASED

REACTIONS (3)
  - Sepsis [Fatal]
  - Pneumonia pseudomonal [Unknown]
  - Toxic epidermal necrolysis [Unknown]
